FAERS Safety Report 23042736 (Version 1)
Quarter: 2023Q4

REPORT INFORMATION
  Report Type: Spontaneous
  Country: CN (occurrence: CN)
  Receive Date: 20231009
  Receipt Date: 20231009
  Transmission Date: 20240110
  Serious: Yes (Death, Life-Threatening, Hospitalization, Other)
  Sender: FDA-Public Use
  Company Number: CN-Accord-383796

PATIENT
  Age: 61 Year
  Sex: Male

DRUGS (7)
  1. FLUOROURACIL [Suspect]
     Active Substance: FLUOROURACIL
     Dosage: EVERY 14 DAYS
     Dates: start: 20220708, end: 202207
  2. CETUXIMAB [Suspect]
     Active Substance: CETUXIMAB
     Dosage: ON D1
     Dates: start: 20220708
  3. CALCIUM FOLINIC ACID [Concomitant]
     Indication: Colon cancer stage IV
     Dosage: ON D1
     Dates: start: 20220708
  4. FLUOROURACIL [Suspect]
     Active Substance: FLUOROURACIL
     Indication: Metastases to lung
     Dosage: FOR48 HOUR EVERY 14 DAYS BY INFUSION PUMP
     Dates: start: 202207, end: 20220710
  5. FLUOROURACIL [Suspect]
     Active Substance: FLUOROURACIL
     Indication: Colon cancer metastatic
     Dosage: EVERY 14 DAYS
     Dates: start: 20220708, end: 202207
  6. CALCIUM FOLINIC ACID [Concomitant]
     Indication: Metastases to pelvis
     Dosage: ON D1
     Dates: start: 20220708
  7. CETUXIMAB [Suspect]
     Active Substance: CETUXIMAB
     Indication: Metastases to abdominal wall
     Dosage: ON D1
     Dates: start: 20220708

REACTIONS (6)
  - Splenic vein thrombosis [Fatal]
  - Pneumonia fungal [Fatal]
  - Respiratory failure [Fatal]
  - Pneumonia bacterial [Fatal]
  - Abdominal infection [Fatal]
  - Portal vein thrombosis [Fatal]

NARRATIVE: CASE EVENT DATE: 20220101
